FAERS Safety Report 8909799 (Version 5)
Quarter: 2013Q3

REPORT INFORMATION
  Report Type: Report from Study
  Country: CA (occurrence: CA)
  Receive Date: 20121115
  Receipt Date: 20130814
  Transmission Date: 20140515
  Serious: Yes (Hospitalization, Other)
  Sender: FDA-Public Use
  Company Number: CA-BAYER-2012-110482

PATIENT
  Age: 62 Year
  Sex: Male
  Weight: 59.18 kg

DRUGS (13)
  1. REGORAFENIB [Suspect]
     Indication: COLORECTAL CANCER METASTATIC
     Dosage: 40 MG, QID
     Route: 048
     Dates: start: 20121003, end: 20121017
  2. REGORAFENIB [Suspect]
     Indication: COLORECTAL CANCER METASTATIC
     Dosage: 40 MG, QID
     Route: 048
     Dates: start: 20121003, end: 20121017
  3. REGORAFENIB [Suspect]
     Indication: COLORECTAL CANCER METASTATIC
     Dosage: 40 MG, QID
     Route: 048
     Dates: start: 20121003, end: 20121017
  4. DILAUDID [Concomitant]
     Indication: PAIN
     Dosage: DAILY DOSE 2 MG
     Route: 048
     Dates: start: 20121003, end: 20121108
  5. LYRICA [Concomitant]
     Indication: PAIN
     Dosage: DAILY DOSE 300 MG
     Route: 048
     Dates: start: 201205, end: 20121108
  6. ROSUVASTATIN [Concomitant]
     Indication: BLOOD CHOLESTEROL ABNORMAL
     Dosage: DAILY DOSE 20 MG
     Route: 048
     Dates: start: 2002, end: 20121108
  7. SENNOSIDE [Concomitant]
     Indication: CONSTIPATION
     Dosage: DAILY DOSE 17.2 MG
     Route: 048
     Dates: start: 201208, end: 20121108
  8. PANTOPRAZOLE [Concomitant]
     Indication: GASTROOESOPHAGEAL REFLUX DISEASE
     Dosage: 40 MG, QD
     Route: 048
     Dates: start: 20120813, end: 20121108
  9. NOVORAPID [Concomitant]
     Indication: DIABETES MELLITUS
     Dosage: TOTAL DAILY DOSE 8 UI
     Route: 058
     Dates: start: 1971, end: 20121108
  10. NOVOLIN [INSULIN] [Concomitant]
     Indication: DIABETES MELLITUS
     Dosage: TOTAL DAILY DOSE 6 UI
     Route: 058
     Dates: start: 2011, end: 20121108
  11. ZOPICLONE [Concomitant]
     Indication: INSOMNIA
     Dosage: DAILY DOSE 7.5 MG
     Route: 048
     Dates: start: 2011, end: 20121108
  12. STEMETIL [Concomitant]
     Indication: NAUSEA
     Dosage: DAILY DOSE 10 MG
     Route: 048
     Dates: start: 20121017, end: 20121108
  13. COVERSYL [Concomitant]
     Indication: HYPERTENSION
     Dosage: DAILY DOSE 4 MG
     Route: 048
     Dates: start: 20121001, end: 20121108

REACTIONS (2)
  - Asthenia [Recovered/Resolved]
  - Hypothyroidism [Not Recovered/Not Resolved]
